FAERS Safety Report 5123279-X (Version None)
Quarter: 2006Q4

REPORT INFORMATION
  Report Type: 
  Country: None (occurrence: None)
  Receive Date: 20061009
  Receipt Date: 20060908
  Transmission Date: 20070319
  Serious: Yes (Other)
  Sender: FDA-Public Use
  Company Number: FR-GLAXOSMITHKLINE-B0439762A

PATIENT
  Age: 35 Year
  Sex: Female

DRUGS (2)
  1. LAMICTAL [Suspect]
     Indication: EPILEPSY
     Dosage: 100MG PER DAY
     Route: 048
  2. INTRAUTERINE CONTRACEPTIVE DEVICE [Concomitant]
     Indication: CONTRACEPTION

REACTIONS (3)
  - ABORTION SPONTANEOUS [None]
  - MENORRHAGIA [None]
  - MENSTRUAL DISORDER [None]
